FAERS Safety Report 20064284 (Version 2)
Quarter: 2021Q4

REPORT INFORMATION
  Report Type: Spontaneous
  Country: US (occurrence: US)
  Receive Date: 20211112
  Receipt Date: 20211212
  Transmission Date: 20220303
  Serious: No
  Sender: FDA-Public Use
  Company Number: US-JNJFOC-20211048774

PATIENT
  Age: 37 Year
  Sex: Female

DRUGS (1)
  1. TREMFYA [Suspect]
     Active Substance: GUSELKUMAB
     Indication: Product used for unknown indication
     Route: 058
     Dates: start: 202011

REACTIONS (3)
  - Product dose omission issue [Unknown]
  - Drug delivery system malfunction [Unknown]
  - Product leakage [Unknown]

NARRATIVE: CASE EVENT DATE: 20211024
